FAERS Safety Report 11926568 (Version 1)
Quarter: 2016Q1

REPORT INFORMATION
  Report Type: Spontaneous
  Country: US (occurrence: US)
  Receive Date: 20160119
  Receipt Date: 20160119
  Transmission Date: 20160526
  Serious: Yes (Other)
  Sender: FDA-Public Use
  Company Number: US-ACTAVIS-2016-00671

PATIENT
  Age: 61 Year
  Sex: Male

DRUGS (2)
  1. METHYLPREDNISOLONE ACETATE (WATSON LABORATORIES) [Suspect]
     Active Substance: METHYLPREDNISOLONE ACETATE
     Indication: OPTIC NEUROPATHY
     Dosage: UNK
     Route: 042
  2. PREDNISONE (WATSON LABORATORIES) [Suspect]
     Active Substance: PREDNISONE
     Indication: OPTIC NEUROPATHY
     Dosage: UNK
     Route: 048

REACTIONS (2)
  - Necrotising herpetic retinopathy [Recovering/Resolving]
  - Condition aggravated [Recovering/Resolving]
